FAERS Safety Report 14294748 (Version 1)
Quarter: 2017Q4

REPORT INFORMATION
  Report Type: Spontaneous
  Country: US (occurrence: US)
  Receive Date: 20171218
  Receipt Date: 20171218
  Transmission Date: 20180321
  Serious: No
  Sender: FDA-Public Use
  Company Number: US-009507513-1712USA006208

PATIENT
  Age: 93 Year
  Sex: Female

DRUGS (7)
  1. SPIRIVA [Concomitant]
     Active Substance: TIOTROPIUM BROMIDE MONOHYDRATE
  2. OMEPRAZOLE. [Concomitant]
     Active Substance: OMEPRAZOLE
  3. VERAPAMIL [Concomitant]
     Active Substance: VERAPAMIL HYDROCHLORIDE
  4. ASMANEX [Suspect]
     Active Substance: MOMETASONE FUROATE
     Indication: BRONCHITIS
  5. PRAVASTATIN. [Concomitant]
     Active Substance: PRAVASTATIN
  6. ASMANEX [Suspect]
     Active Substance: MOMETASONE FUROATE
     Indication: CHRONIC OBSTRUCTIVE PULMONARY DISEASE
     Dosage: ONE PUFF AT NIGHT
     Route: 055
     Dates: start: 2012
  7. WARFARIN [Concomitant]
     Active Substance: WARFARIN

REACTIONS (4)
  - Product use in unapproved indication [Unknown]
  - Incorrect dose administered [Unknown]
  - Dyspnoea [Not Recovered/Not Resolved]
  - Drug dose omission [Unknown]

NARRATIVE: CASE EVENT DATE: 2012
